FAERS Safety Report 14677880 (Version 3)
Quarter: 2019Q4

REPORT INFORMATION
  Report Type: Spontaneous
  Country: UG (occurrence: US)
  Receive Date: 20180326
  Receipt Date: 20191218
  Transmission Date: 20200122
  Serious: Yes (Hospitalization)
  Sender: FDA-Public Use
  Company Number: US-JNJFOC-20180319845

PATIENT
  Age: 73 Year
  Sex: Male
  Weight: 91.7 kg

DRUGS (3)
  1. PLAVIX [Suspect]
     Active Substance: CLOPIDOGREL BISULFATE
     Route: 048
     Dates: end: 201503
  2. ASPIRIN                            /00002701/ [Suspect]
     Active Substance: ASPIRIN
     Route: 048
     Dates: end: 201503
  3. XARELTO [Suspect]
     Active Substance: RIVAROXABAN
     Indication: DEEP VEIN THROMBOSIS
     Dosage: 15 MG, 20 MG
     Route: 048
     Dates: start: 20150306, end: 20150314

REACTIONS (1)
  - Gastrointestinal haemorrhage [Unknown]

NARRATIVE: CASE EVENT DATE: 20150314
